FAERS Safety Report 23831380 (Version 1)
Quarter: 2024Q2

REPORT INFORMATION
  Report Type: Spontaneous
  Country: US (occurrence: US)
  Receive Date: 20240508
  Receipt Date: 20240508
  Transmission Date: 20240716
  Serious: No
  Sender: FDA-Public Use
  Company Number: US-Covis Pharma GmbH-2024COV00533

PATIENT
  Sex: Female

DRUGS (1)
  1. SULAR [Suspect]
     Active Substance: NISOLDIPINE
     Route: 048

REACTIONS (6)
  - Hypoaesthesia [Not Recovered/Not Resolved]
  - Palpitations [Unknown]
  - Headache [Unknown]
  - Chills [Unknown]
  - Depression [Unknown]
  - Insomnia [Not Recovered/Not Resolved]
